FAERS Safety Report 7762933-8 (Version None)
Quarter: 2011Q3

REPORT INFORMATION
  Report Type: 
  Country: None (occurrence: None)
  Receive Date: 20110920
  Receipt Date: 20110915
  Transmission Date: 20111222
  Serious: Yes (Death)
  Sender: FDA-Public Use
  Company Number: PHHY2011DK82114

PATIENT
  Sex: Male
  Weight: 56 kg

DRUGS (4)
  1. MYAMBUTOL [Suspect]
     Dosage: 400 MG, TID
     Route: 048
     Dates: start: 20020621
  2. RIFAMPICIN [Suspect]
     Dosage: 300 MG, BID
     Route: 048
     Dates: start: 20020528, end: 20020621
  3. ISONIAZID [Suspect]
     Dosage: 300 MG/DAY
     Route: 048
     Dates: start: 20020528, end: 20020621
  4. PYRAZINAMIDE [Suspect]
     Dosage: 500 MG, QID
     Route: 048
     Dates: start: 20020528, end: 20020621

REACTIONS (5)
  - BLOOD ALKALINE PHOSPHATASE INCREASED [None]
  - TUBERCULOSIS [None]
  - JAUNDICE [None]
  - HEPATIC ENCEPHALOPATHY [None]
  - CHRONIC HEPATITIS [None]
